FAERS Safety Report 7018919-4 (Version None)
Quarter: 2010Q3

REPORT INFORMATION
  Report Type: 
  Country: None (occurrence: None)
  Receive Date: 20100928
  Receipt Date: 20100923
  Transmission Date: 20110219
  Serious: Yes (Death, Hospitalization)
  Sender: FDA-Public Use
  Company Number: US-CELGENEUS-163-21880-10072079

PATIENT
  Sex: Female

DRUGS (6)
  1. REVLIMID [Suspect]
     Indication: MULTIPLE MYELOMA
     Route: 048
     Dates: start: 20100222, end: 20100720
  2. LANTUS [Concomitant]
     Indication: DIABETES MELLITUS
     Route: 058
  3. DECADRON [Concomitant]
     Indication: MULTIPLE MYELOMA
     Route: 048
  4. KEPPRA [Concomitant]
     Route: 048
  5. SYNTHROID [Concomitant]
     Route: 048
  6. CELEXA [Concomitant]
     Indication: DEPRESSION
     Route: 048

REACTIONS (2)
  - PNEUMONIA [None]
  - SEPTIC SHOCK [None]
